FAERS Safety Report 7134861-2 (Version None)
Quarter: 2010Q4

REPORT INFORMATION
  Report Type: 
  Country: None (occurrence: None)
  Receive Date: 20101130
  Receipt Date: 20101130
  Transmission Date: 20110411
  Serious: Yes (Other)
  Sender: FDA-Public Use
  Company Number: None

PATIENT
  Age: 30 Year
  Sex: Female
  Weight: 61.2356 kg

DRUGS (1)
  1. NITROFURANTOIN [Suspect]
     Indication: PROPHYLAXIS URINARY TRACT INFECTION
     Dosage: 100MG ONE TIME PO
     Route: 048
     Dates: start: 20101106, end: 20101106

REACTIONS (7)
  - DYSPNOEA [None]
  - HYPOAESTHESIA [None]
  - MALAISE [None]
  - NAUSEA [None]
  - PARAESTHESIA [None]
  - VAGINAL HAEMORRHAGE [None]
  - VOMITING [None]
